FAERS Safety Report 10783379 (Version 1)
Quarter: 2015Q1

REPORT INFORMATION
  Report Type: Spontaneous
  Country: US (occurrence: US)
  Receive Date: 20150210
  Receipt Date: 20150210
  Transmission Date: 20150721
  Serious: No
  Sender: FDA-Public Use
  Company Number: US-GLAXOSMITHKLINE-A1081317A

PATIENT

DRUGS (29)
  1. BACTRIM DS [Concomitant]
     Active Substance: SULFAMETHOXAZOLE\TRIMETHOPRIM
  2. CIALIS [Concomitant]
     Active Substance: TADALAFIL
  3. RIFAMPIN. [Concomitant]
     Active Substance: RIFAMPIN
  4. RIFAMPIN. [Suspect]
     Active Substance: RIFAMPIN
  5. ATRIPLA TABLET [Concomitant]
  6. BENZOYL PEROXIDE + CLINDAMYCIN PHOSPHATE GEL [Concomitant]
     Active Substance: BENZOYL PEROXIDE\CLINDAMYCIN PHOSPHATE
  7. LASIX [Concomitant]
     Active Substance: FUROSEMIDE
  8. LEVAQUIN TABLET [Concomitant]
  9. LEVETIRACETAM. [Concomitant]
     Active Substance: LEVETIRACETAM
  10. LISINOPRIL. [Concomitant]
     Active Substance: LISINOPRIL
  11. METROGEL GEL [Concomitant]
  12. TOPICORT [Concomitant]
     Active Substance: DESOXIMETASONE
  13. ZOFRAN [Suspect]
     Active Substance: ONDANSETRON HYDROCHLORIDE
     Indication: NAUSEA
     Dosage: 8 MG FOUR TIMES A DAY AS NEEDED
     Route: 048
     Dates: start: 201406, end: 20140623
  14. BACTROBAN [Concomitant]
     Active Substance: MUPIROCIN\MUPIROCIN CALCIUM
  15. CLOBETASOL [Concomitant]
     Active Substance: CLOBETASOL
  16. MOBIC [Concomitant]
     Active Substance: MELOXICAM
  17. NEURONTIN CAPSULE [Concomitant]
  18. ADVAIR DISKUS [Concomitant]
     Active Substance: FLUTICASONE PROPIONATE\SALMETEROL XINAFOATE
  19. AZITHROMYCIN [Concomitant]
     Active Substance: AZITHROMYCIN ANHYDROUS
  20. COMBIVENT [Concomitant]
     Active Substance: ALBUTEROL SULFATE\IPRATROPIUM BROMIDE
  21. CYMBALTA [Concomitant]
     Active Substance: DULOXETINE HYDROCHLORIDE
  22. VALTREX [Concomitant]
     Active Substance: VALACYCLOVIR HYDROCHLORIDE
  23. ZYVOX [Suspect]
     Active Substance: LINEZOLID
     Indication: STAPHYLOCOCCAL INFECTION
     Route: 048
     Dates: start: 20140618
  24. PROMETHAZINE TABLET [Concomitant]
  25. RETIN-A CREAM [Concomitant]
  26. NORCO [Concomitant]
     Active Substance: ACETAMINOPHEN\HYDROCODONE BITARTRATE
  27. POTASSIUM CITRATE. [Concomitant]
     Active Substance: POTASSIUM CITRATE
  28. VIAGRA [Concomitant]
     Active Substance: SILDENAFIL CITRATE
  29. XANAX [Concomitant]
     Active Substance: ALPRAZOLAM

REACTIONS (2)
  - Dysphagia [Recovered/Resolved]
  - Drug ineffective [Recovered/Resolved]

NARRATIVE: CASE EVENT DATE: 201406
